FAERS Safety Report 6924398-5 (Version None)
Quarter: 2010Q3

REPORT INFORMATION
  Report Type: 
  Country: None (occurrence: None)
  Receive Date: 20100804
  Receipt Date: 20100722
  Transmission Date: 20110219
  Serious: Yes (Hospitalization, Other)
  Sender: FDA-Public Use
  Company Number: AEUSA201000260

PATIENT
  Sex: Male

DRUGS (4)
  1. GAMUNEX [Suspect]
     Indication: CHRONIC INFLAMMATORY DEMYELINATING POLYRADICULONEUROPATHY
     Dosage: 50 GM;QD;IV
     Route: 042
     Dates: start: 20100514, end: 20100612
  2. BENADRYL /00000402/ (CON.) [Concomitant]
  3. TYLENOL /00020001/ (CON.) [Concomitant]
  4. SYNTHROID (CON.) [Concomitant]

REACTIONS (11)
  - CHILLS [None]
  - COUGH [None]
  - FATIGUE [None]
  - FEELING ABNORMAL [None]
  - HYPERSENSITIVITY [None]
  - HYPOVENTILATION [None]
  - INFLUENZA LIKE ILLNESS [None]
  - PAIN [None]
  - PRURITUS [None]
  - PYREXIA [None]
  - WHEEZING [None]
